FAERS Safety Report 5685622-2 (Version None)
Quarter: 2008Q1

REPORT INFORMATION
  Report Type: 
  Country: None (occurrence: None)
  Receive Date: 20080328
  Receipt Date: 20070918
  Transmission Date: 20080703
  Serious: No
  Sender: FDA-Public Use
  Company Number: US-BAYER-US-2007-035357

PATIENT
  Age: 33 Year
  Sex: Female
  Weight: 61 kg

DRUGS (2)
  1. MIRENA [Suspect]
     Indication: CONTRACEPTION
     Route: 015
     Dates: start: 20040315, end: 20070919
  2. DOXYCYCLINE [Concomitant]
     Dosage: UNIT DOSE: 100 MG
     Dates: start: 20070913

REACTIONS (8)
  - ABDOMINAL PAIN [None]
  - AMENORRHOEA [None]
  - BLADDER DISCOMFORT [None]
  - BLOOD URINE PRESENT [None]
  - BREAST DISORDER FEMALE [None]
  - INFECTION [None]
  - INITIAL INSOMNIA [None]
  - URINARY TRACT INFECTION [None]
